FAERS Safety Report 11433762 (Version 2)
Quarter: 2015Q4

REPORT INFORMATION
  Report Type: Report from Study
  Country: US (occurrence: US)
  Receive Date: 20150831
  Receipt Date: 20151014
  Transmission Date: 20160304
  Serious: Yes (Hospitalization)
  Sender: FDA-Public Use
  Company Number: PHEH2015US016668

PATIENT
  Sex: Female
  Weight: 81.63 kg

DRUGS (2)
  1. SYNTHROID [Concomitant]
     Active Substance: LEVOTHYROXINE SODIUM
     Indication: PRODUCT USED FOR UNKNOWN INDICATION
     Route: 065
  2. GILENYA [Suspect]
     Active Substance: FINGOLIMOD HYDROCHLORIDE
     Indication: MULTIPLE SCLEROSIS
     Dosage: 0.5 MG, QD
     Route: 048
     Dates: start: 20150601

REACTIONS (12)
  - Memory impairment [Recovering/Resolving]
  - Heat exhaustion [Recovered/Resolved]
  - Pneumonia [Recovering/Resolving]
  - Dry mouth [Recovering/Resolving]
  - Muscular weakness [Recovered/Resolved]
  - Cough [Recovering/Resolving]
  - Diplopia [Recovering/Resolving]
  - Body temperature increased [Recovering/Resolving]
  - Dehydration [Recovering/Resolving]
  - Fall [Recovered/Resolved]
  - Musculoskeletal stiffness [Recovering/Resolving]
  - Cataract [Recovering/Resolving]
